FAERS Safety Report 5929280-8 (Version None)
Quarter: 2008Q4

REPORT INFORMATION
  Report Type: 
  Country: None (occurrence: None)
  Receive Date: 20081023
  Receipt Date: 20081023
  Transmission Date: 20090506
  Serious: No
  Sender: FDA-Public Use
  Company Number: None

PATIENT
  Age: 54 Year
  Sex: Female
  Weight: 58.9676 kg

DRUGS (2)
  1. DIAZEPAM [Suspect]
     Dosage: 5 MGS 1 X DAY PO
     Route: 048
  2. DIAZEPAM [Suspect]
     Dosage: 5 MG 1 X DAY PO
     Route: 048

REACTIONS (2)
  - THERAPEUTIC RESPONSE UNEXPECTED WITH DRUG SUBSTITUTION [None]
  - UNEVALUABLE EVENT [None]
